FAERS Safety Report 4317263-3 (Version None)
Quarter: 2004Q1

REPORT INFORMATION
  Report Type: 
  Country: None (occurrence: None)
  Receive Date: 20040312
  Receipt Date: 20040217
  Transmission Date: 20041129
  Serious: Yes (Hospitalization)
  Sender: FDA-Public Use
  Company Number: 2004-FF-00107FF(1)

PATIENT
  Age: 44 Year
  Sex: Male

DRUGS (5)
  1. MOBIC [Suspect]
     Indication: PAIN
     Dosage: MG (7.5 MG) PO
     Route: 048
     Dates: start: 20031229
  2. CLONAZEPAM [Suspect]
     Indication: PAIN
     Dosage: 10 DROPS PO; 70 DROPS DAILY PO
     Route: 048
     Dates: start: 20031229, end: 20031230
  3. CLONAZEPAM [Suspect]
     Indication: PAIN
     Dosage: 10 DROPS PO; 70 DROPS DAILY PO
     Route: 048
     Dates: start: 20031231
  4. AOTAL (ACAMPROSATE) [Concomitant]
  5. ZALDIAR [Concomitant]

REACTIONS (4)
  - ALCOHOL INTERACTION [None]
  - ALCOHOL USE [None]
  - COMA [None]
  - RESPIRATORY DISTRESS [None]
